FAERS Safety Report 22062741 (Version 1)
Quarter: 2023Q1

REPORT INFORMATION
  Report Type: Spontaneous
  Country: US (occurrence: US)
  Receive Date: 20230306
  Receipt Date: 20230306
  Transmission Date: 20230418
  Serious: No
  Sender: FDA-Public Use
  Company Number: US-TAKEDA-2023TUS019637

PATIENT

DRUGS (1)
  1. ADDERALL XR [Suspect]
     Active Substance: AMPHETAMINE ASPARTATE\AMPHETAMINE SULFATE\DEXTROAMPHETAMINE SACCHARATE\DEXTROAMPHETAMINE SULFATE
     Indication: Attention deficit hyperactivity disorder
     Dosage: UNK
     Route: 065

REACTIONS (8)
  - Apathy [Unknown]
  - Anhedonia [Unknown]
  - Drug ineffective [Unknown]
  - Peripheral coldness [Unknown]
  - Fatigue [Unknown]
  - Depression [Recovered/Resolved]
  - Heart rate increased [Unknown]
  - Headache [Unknown]
